FAERS Safety Report 9122017 (Version 1)
Quarter: 2013Q1

REPORT INFORMATION
  Report Type: Spontaneous
  Country: US (occurrence: US)
  Receive Date: 20130227
  Receipt Date: 20130227
  Transmission Date: 20140127
  Serious: Yes (Other)
  Sender: FDA-Public Use
  Company Number: US-BRISTOL-MYERS SQUIBB COMPANY-17399858

PATIENT
  Age: 87 Year
  Sex: Female
  Weight: 63.49 kg

DRUGS (8)
  1. SPRYCEL [Suspect]
     Indication: CHRONIC MYELOID LEUKAEMIA
     Route: 048
     Dates: start: 20130207
  2. NORVASC [Concomitant]
  3. PAXIL [Concomitant]
  4. CALCIUM CITRATE [Concomitant]
  5. ARICEPT [Concomitant]
  6. PERCOCET [Concomitant]
  7. LEVOTHYROXIN [Concomitant]
  8. LASIX [Concomitant]

REACTIONS (4)
  - Oxygen saturation decreased [Not Recovered/Not Resolved]
  - Decreased appetite [Recovered/Resolved]
  - Headache [Recovered/Resolved]
  - Nausea [Recovered/Resolved]
